FAERS Safety Report 10601721 (Version 1)
Quarter: 2014Q4

REPORT INFORMATION
  Report Type: Spontaneous
  Country: US (occurrence: None)
  Receive Date: 20141120
  Receipt Date: 20141120
  Transmission Date: 20150529
  Serious: Yes (Hospitalization)
  Sender: FDA-Public Use
  Company Number: IPC201411-000608

PATIENT
  Age: 62 Year
  Sex: Male

DRUGS (11)
  1. METOPROLOL TARTRATE. [Suspect]
     Active Substance: METOPROLOL TARTRATE
  2. ATORVASTATIN (ATORVASTATIN) (ATORVASTATIN) [Suspect]
     Active Substance: ATORVASTATIN
  3. ESCITALOPRAM [Suspect]
     Active Substance: ESCITALOPRAM OXALATE
  4. LISINOPRIL (LISINOPRIL) (LISINOPRIL) [Suspect]
     Active Substance: LISINOPRIL
  5. FUROSEMIDE. [Suspect]
     Active Substance: FUROSEMIDE
  6. IPRATROPRIUM/ALBUTEROL [Suspect]
     Active Substance: ALBUTEROL\IPRATROPIUM
     Dosage: (AS NEEDED)?
  7. INSULIN [Suspect]
     Active Substance: INSULIN NOS
  8. NITROGLYCERIN. [Suspect]
     Active Substance: NITROGLYCERIN
     Dosage: (AS NEEDED ), SUBLINGUAL
     Route: 060
  9. METHYLENE BLUE. [Suspect]
     Active Substance: METHYLENE BLUE
     Dosage: 1MG/KG IN 2 CONSECUTIVE DOSES
  10. LAMOTRIGINE (LAMOTRIGINE) (LAMOTRIGINE) [Suspect]
     Active Substance: LAMOTRIGINE
     Dosage: THERAPY - STOPPED
  11. ASPIRIN (ACETYLSALICYLIC ACID) (ACETYLSALICYLIC ACID) [Suspect]
     Active Substance: ASPIRIN

REACTIONS (10)
  - Encephalopathy [None]
  - Hypotension [None]
  - Myocardial infarction [None]
  - Drug interaction [None]
  - Serotonin syndrome [None]
  - Pulseless electrical activity [None]
  - Nystagmus [None]
  - Hyperthermia [None]
  - Cardiac arrest [None]
  - Muscle rigidity [None]
